FAERS Safety Report 9278308 (Version 1)
Quarter: 2013Q2

REPORT INFORMATION
  Report Type: Spontaneous
  Country: US (occurrence: US)
  Receive Date: 20130508
  Receipt Date: 20130508
  Transmission Date: 20140414
  Serious: Yes (Life-Threatening, Hospitalization)
  Sender: FDA-Public Use
  Company Number: US-FRI-1000044872

PATIENT
  Age: 67 Year
  Sex: Female
  Weight: 47.7 kg

DRUGS (19)
  1. DALIRESP [Suspect]
     Indication: CHRONIC OBSTRUCTIVE PULMONARY DISEASE
     Dosage: 400 MG
     Route: 048
     Dates: start: 20121219, end: 20121227
  2. MEGACE [Concomitant]
     Indication: DECREASED APPETITE
     Dosage: 40 MG
  3. POTASSIUM [Concomitant]
     Dosage: MEQ
  4. DIGOXIN [Concomitant]
     Dosage: 0.25 MG
  5. ASPIRIN [Concomitant]
     Dosage: 81 MG
  6. PREDNISONE [Concomitant]
     Dosage: 5 MG
  7. IPRATROPIUM/ALBUETROL [Concomitant]
  8. MULTIVITAMIN [Concomitant]
  9. LASIX [Concomitant]
     Dosage: 40 MG
  10. AMBIEN [Concomitant]
     Dosage: 5 MG
  11. OMEPRAZOLE [Concomitant]
     Dosage: 20 MG
  12. SPIRIVA [Concomitant]
     Route: 055
  13. METOPROLOL XL [Concomitant]
     Dosage: 25 MG
  14. ALENDRONATE [Concomitant]
     Dosage: 70 MG
  15. VITAMIN D [Concomitant]
  16. SERTRALINE [Concomitant]
     Dosage: 50 MG
  17. FORADIL [Concomitant]
  18. INFLUENZA VACCINE [Concomitant]
     Dates: start: 20121017, end: 20121017
  19. AZITHROMYCIN [Concomitant]
     Dates: start: 20121219

REACTIONS (3)
  - Guillain-Barre syndrome [Recovering/Resolving]
  - Pruritus [Unknown]
  - Influenza like illness [Unknown]
